FAERS Safety Report 24139440 (Version 1)
Quarter: 2024Q3

REPORT INFORMATION
  Report Type: Spontaneous
  Country: US (occurrence: US)
  Receive Date: 20240726
  Receipt Date: 20240726
  Transmission Date: 20241017
  Serious: Yes (Other)
  Sender: GRANULES INDIA
  Company Number: US-GRANULES-US-2024GRASPO00284

PATIENT
  Age: 83 Year
  Sex: Female

DRUGS (1)
  1. GUAIFENESIN [Suspect]
     Active Substance: GUAIFENESIN
     Indication: Parkinson^s disease
     Route: 048
     Dates: start: 20240710

REACTIONS (2)
  - Choking [Unknown]
  - Product use in unapproved indication [Unknown]

NARRATIVE: CASE EVENT DATE: 20240710
